FAERS Safety Report 12970256 (Version 1)
Quarter: 2016Q4

REPORT INFORMATION
  Report Type: Spontaneous
  Country: CH (occurrence: CH)
  Receive Date: 20161123
  Receipt Date: 20161123
  Transmission Date: 20170207
  Serious: Yes (Hospitalization, Other)
  Sender: FDA-Public Use
  Company Number: CH-SUNOVION-2016SUN002873

PATIENT

DRUGS (8)
  1. AKINETON [Concomitant]
     Active Substance: BIPERIDEN HYDROCHLORIDE
     Dosage: 4 MG, QD
  2. AKINETON [Concomitant]
     Active Substance: BIPERIDEN HYDROCHLORIDE
     Dosage: 2 MG, QD
     Dates: start: 20161021, end: 20161026
  3. LATUDA [Suspect]
     Active Substance: LURASIDONE HYDROCHLORIDE
     Indication: SCHIZOPHRENIA
     Dosage: 80 MG, HS
     Route: 048
     Dates: start: 201604, end: 20161019
  4. CLOPIN ECO [Suspect]
     Active Substance: CLOZAPINE
     Dosage: 75 MG, HS
     Dates: end: 20161019
  5. FLOXYFRAL [Suspect]
     Active Substance: FLUVOXAMINE
     Dosage: 100 MG, QD
     Dates: start: 201604, end: 20161020
  6. ORFIRIL [Suspect]
     Active Substance: VALPROIC ACID
     Dosage: 800 MG, UNK
     Dates: start: 20161021
  7. CLOPIN ECO [Suspect]
     Active Substance: CLOZAPINE
     Dosage: UNK
     Dates: start: 20161021
  8. ORFIRIL [Suspect]
     Active Substance: VALPROIC ACID
     Dosage: 1000 MG, QD

REACTIONS (2)
  - Drug interaction [Unknown]
  - Toxic encephalopathy [Recovered/Resolved]

NARRATIVE: CASE EVENT DATE: 201604
